FAERS Safety Report 5389884-0 (Version None)
Quarter: 2007Q3

REPORT INFORMATION
  Report Type: 
  Country: None (occurrence: None)
  Receive Date: 20070718
  Receipt Date: 20070711
  Transmission Date: 20080115
  Serious: Yes (Hospitalization, Other)
  Sender: FDA-Public Use
  Company Number: PHNU2007DE02492

PATIENT
  Sex: Male

DRUGS (4)
  1. SANDIMMUNE [Suspect]
     Indication: LIVER TRANSPLANT
  2. CELLCEPT [Concomitant]
  3. FOSAMAX [Concomitant]
  4. ACEBUTOLOL [Concomitant]

REACTIONS (5)
  - BLOOD CREATININE INCREASED [None]
  - METABOLIC ACIDOSIS [None]
  - NEPHROPATHY TOXIC [None]
  - PNEUMONIA [None]
  - RENAL DISORDER [None]
